FAERS Safety Report 19455194 (Version 1)
Quarter: 2021Q2

REPORT INFORMATION
  Report Type: Spontaneous
  Country: US (occurrence: US)
  Receive Date: 20210623
  Receipt Date: 20210623
  Transmission Date: 20210717
  Serious: No
  Sender: FDA-Public Use
  Company Number: US-ROCHE-2821745

PATIENT
  Sex: Female
  Weight: 82.8 kg

DRUGS (1)
  1. HERCEPTIN HYLECTA [Suspect]
     Active Substance: HYALURONIDASE-OYSK\TRASTUZUMAB
     Indication: HER2 POSITIVE BREAST CANCER
     Route: 058
     Dates: start: 20201207

REACTIONS (2)
  - Off label use [Unknown]
  - No adverse event [Unknown]
